FAERS Safety Report 5814853-3 (Version None)
Quarter: 2008Q3

REPORT INFORMATION
  Report Type: 
  Country: None (occurrence: None)
  Receive Date: 20080718
  Receipt Date: 20080714
  Transmission Date: 20090109
  Serious: Yes (Life-Threatening, Hospitalization)
  Sender: FDA-Public Use
  Company Number: SE-AMGEN-US266165

PATIENT
  Sex: Male

DRUGS (1)
  1. ENBREL [Suspect]
     Indication: RHEUMATOID ARTHRITIS
     Dosage: UNKNOWN

REACTIONS (4)
  - BLOOD SODIUM DECREASED [None]
  - CONDITION AGGRAVATED [None]
  - METASTATIC SQUAMOUS CELL CARCINOMA [None]
  - RHEUMATOID ARTHRITIS [None]
